FAERS Safety Report 8537506-X (Version None)
Quarter: 2012Q3

REPORT INFORMATION
  Report Type: 
  Country: None (occurrence: None)
  Receive Date: 20120725
  Receipt Date: 20120718
  Transmission Date: 20120928
  Serious: Yes (Hospitalization)
  Sender: FDA-Public Use
  Company Number: US-BAXTER-2012BAX008365

PATIENT
  Sex: Male
  Weight: 96.929 kg

DRUGS (10)
  1. GAMMAGARD LIQUID [Suspect]
     Indication: POLYMYOSITIS
     Route: 042
     Dates: start: 20120322, end: 20120606
  2. METFORMIN HCL [Concomitant]
     Route: 048
     Dates: start: 20120409
  3. PRILOSEC [Concomitant]
     Route: 048
     Dates: start: 20120409
  4. GLIPIZIDE [Concomitant]
     Route: 048
     Dates: start: 20120409
  5. LISINOPRIL [Concomitant]
     Route: 048
     Dates: start: 20120409
  6. HYDROCHLOROTHIAZIDE [Concomitant]
     Route: 048
     Dates: start: 20120409
  7. HEPARIN LOCK-FLUSH [Concomitant]
     Route: 042
     Dates: start: 20120411
  8. REGLAN [Concomitant]
     Route: 048
     Dates: start: 20120409
  9. GAMMAGARD LIQUID [Suspect]
     Route: 042
     Dates: start: 20120322, end: 20120606
  10. METOPROLOL SUCCINATE [Concomitant]
     Route: 048
     Dates: start: 20120409

REACTIONS (7)
  - OEDEMA PERIPHERAL [None]
  - DEEP VEIN THROMBOSIS [None]
  - ABDOMINAL DISCOMFORT [None]
  - BLOOD PRESSURE INCREASED [None]
  - ABDOMINAL DISTENSION [None]
  - PULMONARY EMBOLISM [None]
  - CHEST PAIN [None]
